FAERS Safety Report 4735254-5 (Version None)
Quarter: 2005Q3

REPORT INFORMATION
  Report Type: 
  Country: None (occurrence: None)
  Receive Date: 20050802
  Receipt Date: 20050721
  Transmission Date: 20060218
  Serious: Yes (Other)
  Sender: FDA-Public Use
  Company Number: 216282

PATIENT
  Age: 52 Year
  Sex: Female

DRUGS (1)
  1. EFALIZUMAB (EFALIZUMAB) PWDR + SOLVENT, INJECTION SOLN, 125MG [Suspect]
     Indication: PSORIASIS
     Dates: start: 20010201, end: 20041201

REACTIONS (2)
  - CERVIX CARCINOMA [None]
  - PAPILLOMA VIRAL INFECTION [None]
